FAERS Safety Report 14806314 (Version 3)
Quarter: 2018Q2

REPORT INFORMATION
  Report Type: Spontaneous
  Country: BR (occurrence: BR)
  Receive Date: 20180425
  Receipt Date: 20180509
  Transmission Date: 20180711
  Serious: Yes (Hospitalization, Other)
  Sender: FDA-Public Use
  Company Number: BR-ALEXION PHARMACEUTICALS INC.-A201804240

PATIENT
  Age: 30 Year
  Sex: Female

DRUGS (2)
  1. SOLIRIS [Suspect]
     Active Substance: ECULIZUMAB
     Indication: PAROXYSMAL NOCTURNAL HAEMOGLOBINURIA
     Dosage: 600MG EVERY 7 DAYS
     Route: 042
     Dates: start: 20140926, end: 20141017
  2. SOLIRIS [Suspect]
     Active Substance: ECULIZUMAB
     Dosage: 900MG EVERY 14 DAYS
     Route: 042
     Dates: start: 20141024

REACTIONS (15)
  - Pain [Unknown]
  - Headache [Unknown]
  - Pyrexia [Unknown]
  - Yellow skin [Unknown]
  - Inflammatory bowel disease [Unknown]
  - Haemoglobin decreased [Unknown]
  - Dysphagia [Unknown]
  - Asthenia [Unknown]
  - Haematoma [Unknown]
  - Syncope [Unknown]
  - Conjunctivitis [Unknown]
  - Vomiting [Unknown]
  - Ocular icterus [Unknown]
  - Haemolysis [Unknown]
  - Fatigue [Not Recovered/Not Resolved]

NARRATIVE: CASE EVENT DATE: 201804
